FAERS Safety Report 15984173 (Version 1)
Quarter: 2019Q1

REPORT INFORMATION
  Report Type: Spontaneous
  Country: US (occurrence: US)
  Receive Date: 20190128
  Receipt Date: 20190128
  Transmission Date: 20190418
  Serious: Yes (Hospitalization)
  Sender: FDA-Public Use
  Company Number: None

PATIENT
  Age: 18 Year
  Sex: Female

DRUGS (1)
  1. BUPROPION XL 150MG [Suspect]
     Active Substance: BUPROPION
     Route: 048
     Dates: start: 20181231, end: 20190103

REACTIONS (1)
  - Seizure [None]

NARRATIVE: CASE EVENT DATE: 20190103
